FAERS Safety Report 7693569-5 (Version None)
Quarter: 2011Q3

REPORT INFORMATION
  Report Type: 
  Country: None (occurrence: None)
  Receive Date: 20110819
  Receipt Date: 20110804
  Transmission Date: 20111222
  Serious: Yes (Other)
  Sender: FDA-Public Use
  Company Number: PHHY2011US73321

PATIENT
  Sex: Male
  Weight: 1 kg

DRUGS (1)
  1. HYDRALAZINE HCL [Suspect]
     Dosage: UNK UKN, UNK
     Route: 064

REACTIONS (3)
  - SMALL FOR DATES BABY [None]
  - PREMATURE BABY [None]
  - MATERNAL EXPOSURE DURING PREGNANCY [None]
